FAERS Safety Report 10288158 (Version 2)
Quarter: 2014Q3

REPORT INFORMATION
  Report Type: Spontaneous
  Country: US (occurrence: US)
  Receive Date: 20140709
  Receipt Date: 20140709
  Transmission Date: 20150326
  Serious: No
  Sender: FDA-Public Use
  Company Number: US-ENDO PHARMACEUTICALS INC.-NYST20130007

PATIENT
  Age: 5 Month
  Sex: Male
  Weight: 7.14 kg

DRUGS (2)
  1. NYSTATIN SUSPENSION [Suspect]
     Active Substance: NYSTATIN
     Dosage: 800,000 UNITS
     Route: 048
     Dates: start: 20131130, end: 201312
  2. NYSTATIN SUSPENSION [Suspect]
     Active Substance: NYSTATIN
     Indication: CANDIDA INFECTION
     Dosage: 2,000,000 UNITS
     Route: 048
     Dates: start: 20131113, end: 20131122

REACTIONS (7)
  - Drug dispensing error [Recovered/Resolved]
  - Abdominal pain upper [Recovered/Resolved]
  - Overdose [Recovered/Resolved]
  - Drug ineffective [Not Recovered/Not Resolved]
  - Vomiting [Recovered/Resolved]
  - Mucous stools [Recovered/Resolved]
  - Diarrhoea [Recovered/Resolved]

NARRATIVE: CASE EVENT DATE: 201311
